FAERS Safety Report 9557077 (Version 3)
Quarter: 2014Q1

REPORT INFORMATION
  Report Type: Report from Study
  Country: JP (occurrence: JP)
  Receive Date: 20130926
  Receipt Date: 20140327
  Transmission Date: 20141002
  Serious: Yes (Life-Threatening, Hospitalization)
  Sender: FDA-Public Use
  Company Number: JP-ABBVIE-13P-087-1151587-00

PATIENT
  Age: 42 Year
  Sex: Female

DRUGS (4)
  1. LIPACREON [Suspect]
     Indication: PANCREATIC INSUFFICIENCY
     Route: 048
     Dates: start: 20121211, end: 20121212
  2. LIPACREON [Suspect]
     Dates: start: 20121213, end: 20121229
  3. LIPACREON [Suspect]
     Dates: start: 20130425
  4. OMEPRAZOLE [Concomitant]
     Indication: PROPHYLAXIS
     Dosage: IN THE MORNING
     Route: 048
     Dates: start: 20121211

REACTIONS (1)
  - Jaundice cholestatic [Recovering/Resolving]
